FAERS Safety Report 6297629-5 (Version None)
Quarter: 2009Q3

REPORT INFORMATION
  Report Type: 
  Country: None (occurrence: None)
  Receive Date: 20090805
  Receipt Date: 20090722
  Transmission Date: 20100115
  Serious: Yes (Hospitalization)
  Sender: FDA-Public Use
  Company Number: US-MYLANLABS-2009S1013047

PATIENT
  Age: 95 Year
  Sex: Female
  Weight: 56.7 kg

DRUGS (12)
  1. CLONIDINE HYDROCHLORIDE [Suspect]
     Indication: BLOOD PRESSURE INCREASED
     Route: 048
     Dates: start: 20090613, end: 20090708
  2. CLONIDINE HYDROCHLORIDE [Suspect]
     Route: 048
     Dates: start: 20090708, end: 20090713
  3. DESIPRAMINE HCL [Concomitant]
  4. BUSPAR [Concomitant]
  5. ZOLOFT [Concomitant]
  6. PREVACID [Concomitant]
  7. CALCITRATE /00471001/ [Concomitant]
  8. FIBER [Concomitant]
  9. ASPIRIN [Concomitant]
  10. XOPENEX [Concomitant]
  11. VITAMINS [Concomitant]
  12. PREDNISONE TAB [Concomitant]

REACTIONS (5)
  - FLAT AFFECT [None]
  - MOANING [None]
  - MOOD ALTERED [None]
  - POVERTY OF THOUGHT CONTENT [None]
  - PROTRUSION TONGUE [None]
